FAERS Safety Report 19813393 (Version 1)
Quarter: 2021Q3

REPORT INFORMATION
  Report Type: Spontaneous
  Country: US (occurrence: US)
  Receive Date: 20210909
  Receipt Date: 20210909
  Transmission Date: 20211014
  Serious: No
  Sender: FDA-Public Use
  Company Number: US-PERRIGO-21US006955

PATIENT
  Age: 83 Year
  Sex: Female
  Weight: 46.71 kg

DRUGS (4)
  1. MINOXIDIL. [Suspect]
     Active Substance: MINOXIDIL
     Indication: ALOPECIA
     Dosage: 1 ML, BID
     Route: 061
     Dates: start: 20210503
  2. VITAMINS NOS [Concomitant]
     Active Substance: VITAMINS
     Indication: SUPPLEMENTATION THERAPY
     Dosage: UNK
     Dates: start: 1996
  3. AMITRIPTYLINE [Concomitant]
     Active Substance: AMITRIPTYLINE
     Indication: IRRITABLE BOWEL SYNDROME
     Dosage: UNK
     Route: 065
     Dates: start: 1996
  4. PROLIA [Concomitant]
     Active Substance: DENOSUMAB
     Indication: OSTEOPOROSIS
     Dosage: INJECTION Q6 MONTHS
     Route: 065
     Dates: start: 202011

REACTIONS (1)
  - Dysgeusia [Recovering/Resolving]

NARRATIVE: CASE EVENT DATE: 20210511
